FAERS Safety Report 17103651 (Version 1)
Quarter: 2019Q4

REPORT INFORMATION
  Report Type: Spontaneous
  Country: US (occurrence: US)
  Receive Date: 20191107
  Receipt Date: 20191107
  Transmission Date: 20200122
  Serious: No
  Sender: FDA-Public Use
  Company Number: None

PATIENT
  Age: 55 Year
  Sex: Male

DRUGS (1)
  1. GENVOYA [Suspect]
     Active Substance: COBICISTAT\ELVITEGRAVIR\EMTRICITABINE\TENOFOVIR ALAFENAMIDE FUMARATE
     Indication: HIV INFECTION
     Dosage: ?          OTHER FREQUENCY:OTHER;?
     Route: 048
     Dates: start: 201801, end: 201911

REACTIONS (2)
  - Therapy cessation [None]
  - Hyperlipidaemia [None]

NARRATIVE: CASE EVENT DATE: 20191101
